FAERS Safety Report 16875477 (Version 2)
Quarter: 2019Q4

REPORT INFORMATION
  Report Type: Spontaneous
  Country: RO (occurrence: RO)
  Receive Date: 20191002
  Receipt Date: 20191111
  Transmission Date: 20200122
  Serious: Yes (Death, Hospitalization)
  Sender: FDA-Public Use
  Company Number: RO-ROCHE-2416390

PATIENT
  Age: 67 Year
  Sex: Female

DRUGS (2)
  1. AVASTIN [Suspect]
     Active Substance: BEVACIZUMAB
     Indication: OVARIAN CANCER METASTATIC
     Dosage: NO
     Route: 065
     Dates: start: 20190123
  2. CAELYX [Concomitant]
     Active Substance: DOXORUBICIN HYDROCHLORIDE
     Indication: OVARIAN CANCER METASTATIC
     Route: 065
     Dates: start: 20190123

REACTIONS (2)
  - Death [Fatal]
  - Subileus [Recovered/Resolved]

NARRATIVE: CASE EVENT DATE: 20190624
